FAERS Safety Report 11882136 (Version 1)
Quarter: 2015Q4

REPORT INFORMATION
  Report Type: Spontaneous
  Country: US (occurrence: US)
  Receive Date: 20151231
  Receipt Date: 20151231
  Transmission Date: 20160305
  Serious: Yes (Death, Other)
  Sender: FDA-Public Use
  Company Number: US-JNJFOC-20151221150

PATIENT

DRUGS (1)
  1. DOXORUBICIN [Suspect]
     Active Substance: DOXORUBICIN
     Indication: SOFT TISSUE SARCOMA
     Dosage: 6 CYCLES
     Route: 042

REACTIONS (24)
  - Septic shock [Fatal]
  - Pneumonia [Unknown]
  - Asthenia [Unknown]
  - Leukopenia [Unknown]
  - Thrombocytopenia [Unknown]
  - Anaemia [Unknown]
  - Ejection fraction decreased [Unknown]
  - Abdominal pain [Unknown]
  - Off label use [Unknown]
  - Decreased appetite [Unknown]
  - Mucosal inflammation [Unknown]
  - Febrile neutropenia [Unknown]
  - Pyrexia [Unknown]
  - Vomiting [Unknown]
  - Fatigue [Unknown]
  - Diarrhoea [Unknown]
  - Product use issue [Unknown]
  - Alopecia [Unknown]
  - Inappropriate schedule of drug administration [Unknown]
  - Stomatitis [Unknown]
  - Nausea [Unknown]
  - Dehydration [Unknown]
  - Neutropenia [Unknown]
  - Constipation [Unknown]
